FAERS Safety Report 15989986 (Version 2)
Quarter: 2019Q2

REPORT INFORMATION
  Report Type: Other
  Country: US (occurrence: US)
  Receive Date: 20190221
  Receipt Date: 20190418
  Transmission Date: 20190711
  Serious: Yes (Other)
  Sender: FDA-Public Use
  Company Number: US-ACORDA-ACO_157217_2019

PATIENT
  Sex: Male

DRUGS (2)
  1. AMPYRA [Suspect]
     Active Substance: DALFAMPRIDINE
     Indication: GAIT DISTURBANCE
     Dosage: 10 MG, BID
     Route: 048
     Dates: start: 201710
  2. TYSABRI [Suspect]
     Active Substance: NATALIZUMAB
     Indication: MULTIPLE SCLEROSIS
     Dosage: 300 MG WEEKLY, INFUSED OVER 1 HOUR
     Route: 042
     Dates: start: 2015

REACTIONS (6)
  - Condition aggravated [Not Recovered/Not Resolved]
  - Lower limb fracture [Recovered/Resolved]
  - Ligament rupture [Recovered/Resolved]
  - Fall [Recovered/Resolved]
  - Lower limb fracture [Recovered/Resolved]
  - Memory impairment [Not Recovered/Not Resolved]

NARRATIVE: CASE EVENT DATE: 2015
